FAERS Safety Report 15014732 (Version 1)
Quarter: 2018Q2

REPORT INFORMATION
  Report Type: Spontaneous
  Country: US (occurrence: US)
  Receive Date: 20180530
  Receipt Date: 20180530
  Transmission Date: 20180711
  Serious: Yes (Other)
  Sender: FDA-Public Use
  Company Number: None

PATIENT
  Age: 88 Year
  Sex: Female
  Weight: 81 kg

DRUGS (2)
  1. HEPARIN [Suspect]
     Active Substance: HEPARIN SODIUM
     Indication: FLUSHING
     Route: 042
     Dates: start: 20180411, end: 20180417
  2. HEPARIN FLUSH SYRINGE 500UNITS/5ML [Concomitant]
     Dates: start: 20180411, end: 20180417

REACTIONS (3)
  - Urinary tract infection [None]
  - Product contamination microbial [None]
  - Serratia infection [None]

NARRATIVE: CASE EVENT DATE: 20180424
